FAERS Safety Report 5547835-X (Version None)
Quarter: 2007Q4

REPORT INFORMATION
  Report Type: 
  Country: None (occurrence: None)
  Receive Date: 20071211
  Receipt Date: 20071203
  Transmission Date: 20080405
  Serious: Yes (Hospitalization)
  Sender: FDA-Public Use
  Company Number: US-GENENTECH-252208

PATIENT
  Age: 70 Year
  Sex: Male

DRUGS (2)
  1. AVASTIN [Suspect]
     Indication: NON-SMALL CELL LUNG CANCER
     Route: 042
  2. CHEMOTHERAPY (UNK INGREDIENTS) [Concomitant]
     Indication: NON-SMALL CELL LUNG CANCER

REACTIONS (3)
  - BLOOD CREATININE INCREASED [None]
  - PROTEIN URINE PRESENT [None]
  - RENAL DISORDER [None]
